FAERS Safety Report 5258286-X (Version None)
Quarter: 2007Q1

REPORT INFORMATION
  Report Type: 
  Country: None (occurrence: None)
  Receive Date: 20070308
  Receipt Date: 20070227
  Transmission Date: 20070707
  Serious: Yes (Death)
  Sender: FDA-Public Use
  Company Number: HQWYE200228FEB07

PATIENT
  Age: 49 Year
  Sex: Female

DRUGS (2)
  1. TYGACIL [Suspect]
     Indication: PERITONITIS
     Dosage: UNKNOWN
  2. TYGACIL [Suspect]
     Indication: STAPHYLOCOCCAL INFECTION
     Dosage: UNKNOWN

REACTIONS (2)
  - MULTI-ORGAN FAILURE [None]
  - SEPTIC SHOCK [None]
